FAERS Safety Report 23631037 (Version 6)
Quarter: 2024Q3

REPORT INFORMATION
  Report Type: Spontaneous
  Country: FR (occurrence: FR)
  Receive Date: 20240314
  Receipt Date: 20240911
  Transmission Date: 20241017
  Serious: Yes (Other)
  Sender: SANDOZ
  Company Number: FR-Accord-161703

PATIENT
  Age: 9 Year
  Sex: Male

DRUGS (145)
  1. AMOXICILLIN [Suspect]
     Active Substance: AMOXICILLIN
     Indication: Antibiotic prophylaxis
     Dosage: UNK, ASSOCIATED WITH THE TREATMENT OF THE GVHD FROM 2.5 TO 8 YEARS OF AGE
     Route: 065
  2. AMSACRINE [Suspect]
     Active Substance: AMSACRINE
     Indication: Acute myeloid leukaemia
     Dosage: 100 MG/M2, Q12H
     Route: 065
  3. AMSACRINE [Suspect]
     Active Substance: AMSACRINE
     Dosage: 100 MG/M2 X 2/DAY, CYCLIC
     Route: 065
  4. AMSACRINE [Suspect]
     Active Substance: AMSACRINE
     Dosage: 200 MG/M2 (100 MILLIGRAM/SQ. METER, BID)
     Route: 065
  5. CYTARABINE [Suspect]
     Active Substance: CYTARABINE
     Indication: Acute myeloid leukaemia
     Dosage: 2 MG/M2, QD
     Route: 065
  6. CYTARABINE [Suspect]
     Active Substance: CYTARABINE
     Indication: Chemotherapy
     Dosage: 200 MG/M2, QD (1/DAY)
     Route: 065
  7. CYTARABINE [Suspect]
     Active Substance: CYTARABINE
     Dosage: 200 MG/M2, QD (1/DAY)
     Route: 065
  8. CYTARABINE [Suspect]
     Active Substance: CYTARABINE
     Dosage: 200 MG/M2/DAY, CYCLIC
     Route: 065
  9. CYTARABINE [Suspect]
     Active Substance: CYTARABINE
     Dosage: 200 MG/M2/DAY, CYCLIC
     Route: 065
  10. CYTARABINE [Suspect]
     Active Substance: CYTARABINE
     Dosage: UNK UNK, BID, 3 G/M2, BID (2/DAY)
     Route: 065
  11. CYTARABINE [Suspect]
     Active Substance: CYTARABINE
     Dosage: UNK UNK, BID, 3 G/M2, BID (2/DAY)
     Route: 065
  12. CYTARABINE [Suspect]
     Active Substance: CYTARABINE
     Dosage: UNK UNK, BID, 3 G/M2, BID (2/DAY)
     Route: 065
  13. CYTARABINE [Suspect]
     Active Substance: CYTARABINE
     Dosage: 3 G/M2X2/DAY, CYCLIC, ON D1, D2, D8, D9
     Route: 065
  14. CYTARABINE [Suspect]
     Active Substance: CYTARABINE
     Dosage: UNK, 2 G/M2, QD (1/DAY) FROM D2 TO D6
     Route: 065
  15. CYTARABINE [Suspect]
     Active Substance: CYTARABINE
     Dosage: UNK, 2 G/M2, QD (1/DAY) FROM D2 TO D6
     Route: 065
  16. CYTARABINE [Suspect]
     Active Substance: CYTARABINE
     Dosage: UNK, 2 G/M2, QD (1/DAY) FROM D2 TO D6
     Route: 065
  17. CYTARABINE [Suspect]
     Active Substance: CYTARABINE
     Dosage: UNK, 2 G/M2, QD (1/DAY) FROM D2 TO D6
     Route: 065
  18. CYTARABINE [Suspect]
     Active Substance: CYTARABINE
     Dosage: UNK, 2 G/M2, QD (1/DAY) FROM D2 TO D6
     Route: 065
  19. CYTARABINE [Suspect]
     Active Substance: CYTARABINE
     Dosage: UNK, 2 G/M2, QD (1/DAY) FROM D2 TO D6
     Route: 065
  20. CYTARABINE [Suspect]
     Active Substance: CYTARABINE
     Dosage: UNK, 3 G/M2, BID (2/DAY) AT D1, D2, D8, D9
     Route: 065
  21. CYTARABINE [Suspect]
     Active Substance: CYTARABINE
     Dosage: UNK, 3 G/M2, BID (2/DAY) AT D1, D2, D8, D9
     Route: 065
  22. CYTARABINE [Suspect]
     Active Substance: CYTARABINE
     Dosage: UNK, 3 G/M2, BID (2/DAY) AT D1, D2, D8, D9
     Route: 065
  23. CYTARABINE [Suspect]
     Active Substance: CYTARABINE
     Dosage: UNK, CYCLIC
     Route: 065
  24. BASILIXIMAB [Suspect]
     Active Substance: BASILIXIMAB
     Indication: Acute myeloid leukaemia
     Dosage: UNK
     Route: 065
  25. BASILIXIMAB [Suspect]
     Active Substance: BASILIXIMAB
     Indication: Chronic graft versus host disease in skin
     Dosage: UNK
     Route: 065
  26. BASILIXIMAB [Suspect]
     Active Substance: BASILIXIMAB
     Indication: Graft versus host disease in lung
     Dosage: UNK
     Route: 065
  27. BASILIXIMAB [Suspect]
     Active Substance: BASILIXIMAB
     Dosage: UNK
     Route: 065
  28. BASILIXIMAB [Suspect]
     Active Substance: BASILIXIMAB
     Dosage: UNK
     Route: 065
  29. BASILIXIMAB [Suspect]
     Active Substance: BASILIXIMAB
     Dosage: UNK
     Route: 065
  30. BASILIXIMAB [Suspect]
     Active Substance: BASILIXIMAB
     Dosage: UNK
     Route: 065
  31. BASILIXIMAB [Suspect]
     Active Substance: BASILIXIMAB
     Dosage: UNK
     Route: 065
  32. BASILIXIMAB [Suspect]
     Active Substance: BASILIXIMAB
     Dosage: UNK
     Route: 065
  33. BASILIXIMAB [Suspect]
     Active Substance: BASILIXIMAB
     Dosage: UNK
     Route: 065
  34. BASILIXIMAB [Suspect]
     Active Substance: BASILIXIMAB
     Indication: Chronic graft versus host disease in intestine
     Dosage: UNK, ASSOCIATED WITH THE TREATMENT OF THE GVHD FROM 2.5 TO 8 YEARS OF AGE
     Route: 065
  35. BASILIXIMAB [Suspect]
     Active Substance: BASILIXIMAB
     Indication: Immunosuppressant drug therapy
     Dosage: UNK, UNKNOWN FREQ.
     Route: 065
  36. BUSULFAN [Suspect]
     Active Substance: BUSULFAN
     Indication: Product used for unknown indication
     Dosage: 1.2 MG/KG, QD, 4X PER DAY
     Route: 065
  37. BUSULFAN [Suspect]
     Active Substance: BUSULFAN
     Dosage: 4.8 MG/KG (1.2 MILLIGRAM/KILOGRAM, QID)
     Route: 065
  38. CYCLOSPORINE [Suspect]
     Active Substance: CYCLOSPORINE
     Indication: Graft versus host disease
     Dosage: UNK
     Route: 065
  39. CYCLOSPORINE [Suspect]
     Active Substance: CYCLOSPORINE
     Indication: Acute myeloid leukaemia
  40. CYCLOPHOSPHAMIDE [Suspect]
     Active Substance: CYCLOPHOSPHAMIDE
     Indication: Bone marrow conditioning regimen
     Dosage: 50 MG/KG, QID, 200 MG/KG (50 MILLIGRAM/KILOGRAM, QID), 1 TIMES IN
     Route: 065
  41. CYCLOPHOSPHAMIDE [Suspect]
     Active Substance: CYCLOPHOSPHAMIDE
     Indication: Product used for unknown indication
  42. CELLCEPT [Suspect]
     Active Substance: MYCOPHENOLATE MOFETIL
     Indication: Antibiotic prophylaxis
     Dosage: 100 MG/M2, Q12H, 100 MG/M2, BID (2/DAY)
     Route: 065
  43. CELLCEPT [Suspect]
     Active Substance: MYCOPHENOLATE MOFETIL
     Dosage: 40 MG/M2, QD ONCE IN1DAY
     Route: 065
  44. CELLCEPT [Suspect]
     Active Substance: MYCOPHENOLATE MOFETIL
     Dosage: 8 MG/M2, QD, (1/DAY), D2, D4, J6
     Route: 065
  45. DAUNORUBICIN [Suspect]
     Active Substance: DAUNORUBICIN
     Indication: Acute myeloid leukaemia
     Dosage: 40 MG/M2, QD, CYCLIC
     Route: 065
  46. ETOPOSIDE [Suspect]
     Active Substance: ETOPOSIDE
     Indication: Acute myeloid leukaemia
     Dosage: 100 MG/M2, QD (1/DAY), ONCE IN1DAY
     Route: 065
  47. FLUDARABINE PHOSPHATE [Suspect]
     Active Substance: FLUDARABINE PHOSPHATE
     Indication: Acute myeloid leukaemia
     Dosage: 30 MG/M2, QD (1/DAY) D2 TO D6
     Route: 065
  48. GRANULOCYTE COLONY-STIMULATING FACTOR NOS [Suspect]
     Active Substance: GRANULOCYTE COLONY-STIMULATING FACTOR NOS
     Indication: Acute myeloid leukaemia
     Dosage: UNK, FROM D1 TO D6
     Route: 065
  49. INFLIXIMAB [Suspect]
     Active Substance: INFLIXIMAB
     Indication: Chronic graft versus host disease
     Dosage: UNK
     Route: 065
  50. INFLIXIMAB [Suspect]
     Active Substance: INFLIXIMAB
     Indication: Immunosuppressant drug therapy
     Dosage: UNK
     Route: 065
  51. INFLIXIMAB [Suspect]
     Active Substance: INFLIXIMAB
     Indication: Acute myeloid leukaemia
  52. INFLIXIMAB [Suspect]
     Active Substance: INFLIXIMAB
     Indication: Chronic graft versus host disease in intestine
  53. INFLIXIMAB [Suspect]
     Active Substance: INFLIXIMAB
     Indication: Chronic graft versus host disease in skin
  54. INFLIXIMAB [Suspect]
     Active Substance: INFLIXIMAB
     Indication: Graft versus host disease in lung
  55. IDARUBICIN [Suspect]
     Active Substance: IDARUBICIN
     Indication: Acute myeloid leukaemia
     Dosage: 8 MG/M2, QD (1/DAY), D2, D4, J6
     Route: 065
  56. ASPARAGINASE [Suspect]
     Active Substance: ASPARAGINASE
     Indication: Acute myeloid leukaemia
     Dosage: UNK, 6000 U/M2/DAY D2, D9
     Route: 065
  57. ASPARAGINASE [Suspect]
     Active Substance: ASPARAGINASE
     Dosage: UNK, 6000 U/M2/DAY D2, D9
     Route: 065
  58. LENOGRASTIM [Suspect]
     Active Substance: LENOGRASTIM
     Indication: Acute myeloid leukaemia
     Dosage: UNK
     Route: 065
  59. ASPARAGINASE [Suspect]
     Active Substance: ASPARAGINASE
     Indication: Acute myeloid leukaemia
     Dosage: UNK, QD
     Route: 065
  60. METHOTREXATE [Suspect]
     Active Substance: METHOTREXATE
     Dosage: UNK
     Route: 065
  61. METHOTREXATE [Suspect]
     Active Substance: METHOTREXATE
     Indication: Product used for unknown indication
     Dosage: UNK, ADDITIONAL INFO: OFF LABEL USE
     Route: 042
  62. MYCOPHENOLATE MOFETIL [Suspect]
     Active Substance: MYCOPHENOLATE MOFETIL
     Indication: Acute graft versus host disease in skin
     Dosage: UNK
     Route: 065
  63. MYCOPHENOLATE MOFETIL [Suspect]
     Active Substance: MYCOPHENOLATE MOFETIL
     Indication: Immunosuppressant drug therapy
     Dosage: UNK
     Route: 065
  64. MYCOPHENOLATE MOFETIL [Suspect]
     Active Substance: MYCOPHENOLATE MOFETIL
     Indication: Acute graft versus host disease in intestine
  65. NOVANTRONE [Suspect]
     Active Substance: MITOXANTRONE HYDROCHLORIDE
     Indication: Acute myeloid leukaemia
     Dosage: 10 MG/M2, QD (1/DAY), CYCLIC
     Route: 065
  66. PROGRAF [Suspect]
     Active Substance: TACROLIMUS
     Indication: Graft versus host disease
     Dosage: 0.5 MG, EVERY OTHER DAY
     Route: 048
     Dates: start: 200906, end: 20101014
  67. PROGRAF [Suspect]
     Active Substance: TACROLIMUS
     Indication: Immunosuppressant drug therapy
     Dosage: UNK
     Route: 065
  68. RITUXIMAB [Suspect]
     Active Substance: RITUXIMAB
     Indication: Immunosuppressant drug therapy
     Dosage: UNK
     Route: 065
  69. RITUXIMAB [Suspect]
     Active Substance: RITUXIMAB
     Indication: Chronic graft versus host disease
  70. RITUXIMAB [Suspect]
     Active Substance: RITUXIMAB
     Indication: Chronic graft versus host disease in intestine
  71. RITUXIMAB [Suspect]
     Active Substance: RITUXIMAB
     Indication: Chronic graft versus host disease in skin
  72. RITUXIMAB [Suspect]
     Active Substance: RITUXIMAB
     Indication: Graft versus host disease in lung
  73. RITUXIMAB [Suspect]
     Active Substance: RITUXIMAB
     Indication: Immunosuppression
     Dosage: UNK
     Route: 065
  74. RITUXIMAB [Suspect]
     Active Substance: RITUXIMAB
     Dosage: UNK
     Route: 065
  75. THYMOGLOBULIN [Suspect]
     Active Substance: LAPINE T-LYMPHOCYTE IMMUNE GLOBULIN
     Indication: Graft versus host disease
     Dosage: UNK, ANTI-THYMOGLOBULIN
     Route: 065
  76. THYMOGLOBULIN [Suspect]
     Active Substance: LAPINE T-LYMPHOCYTE IMMUNE GLOBULIN
     Indication: Prophylaxis against graft versus host disease
     Dosage: UNK, ANTI-THYMOGLOBULIN
     Route: 065
  77. THYMOGLOBULIN [Suspect]
     Active Substance: LAPINE T-LYMPHOCYTE IMMUNE GLOBULIN
     Indication: Immunosuppression
  78. ZOVIRAX [Suspect]
     Active Substance: ACYCLOVIR
     Dosage: UNK
     Route: 065
  79. ZOVIRAX [Suspect]
     Active Substance: ACYCLOVIR
     Dosage: UNK
     Route: 065
  80. ZOVIRAX [Suspect]
     Active Substance: ACYCLOVIR
     Dosage: UNK
     Route: 065
  81. ZOVIRAX [Suspect]
     Active Substance: ACYCLOVIR
     Indication: Product used for unknown indication
     Dosage: UNK, ANTI VIRAL
     Route: 065
  82. AMPHOTERICIN B [Concomitant]
     Active Substance: AMPHOTERICIN B
     Indication: Product used for unknown indication
     Dosage: UNK
     Route: 065
  83. AMPHOTERICIN B [Concomitant]
     Active Substance: AMPHOTERICIN B
     Dosage: UNK
     Route: 065
  84. AMPHOTERICIN B [Concomitant]
     Active Substance: AMPHOTERICIN B
     Dosage: UNK
     Route: 065
  85. AMPHOTERICIN B [Concomitant]
     Active Substance: AMPHOTERICIN B
     Dosage: UNK
     Route: 065
  86. AMPHOTERICIN B [Concomitant]
     Active Substance: AMPHOTERICIN B
     Dosage: UNK
     Route: 065
  87. AMPHOTERICIN B [Concomitant]
     Active Substance: AMPHOTERICIN B
     Dosage: UNK
     Route: 065
  88. AMPHOTERICIN B [Concomitant]
     Active Substance: AMPHOTERICIN B
     Dosage: UNK
     Route: 065
  89. AMPHOTERICIN B [Concomitant]
     Active Substance: AMPHOTERICIN B
     Dosage: UNK
     Route: 065
  90. AMPHOTERICIN B [Concomitant]
     Active Substance: AMPHOTERICIN B
     Dosage: UNK
     Route: 065
  91. AMPHOTERICIN B [Concomitant]
     Active Substance: AMPHOTERICIN B
     Dosage: UNK
     Route: 065
  92. ACYCLOVIR [Concomitant]
     Active Substance: ACYCLOVIR
     Indication: Product used for unknown indication
     Dosage: UNK
     Route: 065
  93. ACYCLOVIR [Concomitant]
     Active Substance: ACYCLOVIR
     Dosage: UNK
     Route: 065
  94. ACYCLOVIR [Concomitant]
     Active Substance: ACYCLOVIR
     Dosage: UNK
     Route: 065
  95. ACYCLOVIR [Concomitant]
     Active Substance: ACYCLOVIR
     Dosage: UNK
     Route: 065
  96. ACYCLOVIR [Concomitant]
     Active Substance: ACYCLOVIR
     Dosage: UNK
     Route: 065
  97. ACYCLOVIR [Concomitant]
     Active Substance: ACYCLOVIR
     Dosage: UNK
     Route: 065
  98. ACYCLOVIR [Concomitant]
     Active Substance: ACYCLOVIR
     Dosage: UNK
     Route: 065
  99. ACYCLOVIR [Concomitant]
     Active Substance: ACYCLOVIR
     Dosage: UNK
     Route: 065
  100. ACYCLOVIR [Concomitant]
     Active Substance: ACYCLOVIR
     Dosage: UNK
     Route: 065
  101. ACYCLOVIR [Concomitant]
     Active Substance: ACYCLOVIR
     Dosage: UNK
     Route: 065
  102. ACYCLOVIR [Concomitant]
     Active Substance: ACYCLOVIR
     Dosage: UNK
     Route: 065
  103. ACYCLOVIR [Concomitant]
     Active Substance: ACYCLOVIR
     Route: 065
  104. ACYCLOVIR [Concomitant]
     Active Substance: ACYCLOVIR
     Route: 065
  105. CASPOFUNGIN [Concomitant]
     Active Substance: CASPOFUNGIN
     Indication: Graft versus host disease
     Dosage: UNK
     Route: 065
  106. CASPOFUNGIN [Concomitant]
     Active Substance: CASPOFUNGIN
     Indication: Immunosuppression
     Dosage: UNK
     Route: 065
  107. CASPOFUNGIN [Concomitant]
     Active Substance: CASPOFUNGIN
     Route: 065
  108. CASPOFUNGIN [Concomitant]
     Active Substance: CASPOFUNGIN
     Route: 065
  109. BETAMETHASONE SODIUM PHOSPHATE [Concomitant]
     Active Substance: BETAMETHASONE SODIUM PHOSPHATE
     Indication: Product used for unknown indication
     Dosage: UNK
     Route: 065
  110. BETAMETHASONE SODIUM PHOSPHATE [Concomitant]
     Active Substance: BETAMETHASONE SODIUM PHOSPHATE
     Dosage: UNK
     Route: 065
  111. BETAMETHASONE SODIUM PHOSPHATE [Concomitant]
     Active Substance: BETAMETHASONE SODIUM PHOSPHATE
     Dosage: UNK
     Route: 065
  112. BETAMETHASONE SODIUM PHOSPHATE [Concomitant]
     Active Substance: BETAMETHASONE SODIUM PHOSPHATE
     Dosage: UNK
     Route: 065
  113. BETAMETHASONE SODIUM PHOSPHATE [Concomitant]
     Active Substance: BETAMETHASONE SODIUM PHOSPHATE
     Dosage: UNK
     Route: 065
  114. BETAMETHASONE SODIUM PHOSPHATE [Concomitant]
     Active Substance: BETAMETHASONE SODIUM PHOSPHATE
     Dosage: UNK
     Route: 065
  115. BETAMETHASONE SODIUM PHOSPHATE [Concomitant]
     Active Substance: BETAMETHASONE SODIUM PHOSPHATE
     Dosage: UNK
     Route: 065
  116. BETAMETHASONE SODIUM PHOSPHATE [Concomitant]
     Active Substance: BETAMETHASONE SODIUM PHOSPHATE
     Dosage: UNK
     Route: 065
  117. BETAMETHASONE SODIUM PHOSPHATE [Concomitant]
     Active Substance: BETAMETHASONE SODIUM PHOSPHATE
     Dosage: UNK
     Route: 065
  118. BETAMETHASONE SODIUM PHOSPHATE [Concomitant]
     Active Substance: BETAMETHASONE SODIUM PHOSPHATE
     Dosage: UNK
     Route: 065
  119. BETAMETHASONE SODIUM PHOSPHATE [Concomitant]
     Active Substance: BETAMETHASONE SODIUM PHOSPHATE
     Dosage: UNK
     Route: 065
  120. BETAMETHASONE SODIUM PHOSPHATE [Concomitant]
     Active Substance: BETAMETHASONE SODIUM PHOSPHATE
     Route: 065
  121. BETAMETHASONE SODIUM PHOSPHATE [Concomitant]
     Active Substance: BETAMETHASONE SODIUM PHOSPHATE
     Route: 065
  122. TOLNAFTATE [Concomitant]
     Active Substance: TOLNAFTATE
     Dosage: UNK
     Route: 065
  123. TOLNAFTATE [Concomitant]
     Active Substance: TOLNAFTATE
     Dosage: UNK
     Route: 065
  124. TOLNAFTATE [Concomitant]
     Active Substance: TOLNAFTATE
     Dosage: UNK
     Route: 065
  125. TOLNAFTATE [Concomitant]
     Active Substance: TOLNAFTATE
     Dosage: UNK
     Route: 065
  126. TOLNAFTATE [Concomitant]
     Active Substance: TOLNAFTATE
     Dosage: UNK
     Route: 065
  127. TOLNAFTATE [Concomitant]
     Active Substance: TOLNAFTATE
     Dosage: UNK
     Route: 065
  128. TOLNAFTATE [Concomitant]
     Active Substance: TOLNAFTATE
     Dosage: UNK
     Route: 065
  129. TOLNAFTATE [Concomitant]
     Active Substance: TOLNAFTATE
     Dosage: UNK
     Route: 065
  130. TOLNAFTATE [Concomitant]
     Active Substance: TOLNAFTATE
     Dosage: UNK
     Route: 065
  131. TOLNAFTATE [Concomitant]
     Active Substance: TOLNAFTATE
     Dosage: UNK
     Route: 065
  132. TOLNAFTATE [Concomitant]
     Active Substance: TOLNAFTATE
     Dosage: UNK
     Route: 065
  133. TOLNAFTATE [Concomitant]
     Active Substance: TOLNAFTATE
     Dosage: UNK
     Route: 065
  134. TOLNAFTATE [Concomitant]
     Active Substance: TOLNAFTATE
     Dosage: UNK
     Route: 065
  135. TOLNAFTATE [Concomitant]
     Active Substance: TOLNAFTATE
     Dosage: UNK
     Route: 065
  136. TOLNAFTATE [Concomitant]
     Active Substance: TOLNAFTATE
     Dosage: UNK
     Route: 065
  137. TOLNAFTATE [Concomitant]
     Active Substance: TOLNAFTATE
     Indication: Graft versus host disease
     Dosage: UNK, FROM D1 TO D6
     Route: 065
  138. TOLNAFTATE [Concomitant]
     Active Substance: TOLNAFTATE
     Route: 065
  139. TOLNAFTATE [Concomitant]
     Active Substance: TOLNAFTATE
     Route: 065
  140. TOLNAFTATE [Concomitant]
     Active Substance: TOLNAFTATE
     Route: 065
  141. TOLNAFTATE [Concomitant]
     Active Substance: TOLNAFTATE
     Route: 065
  142. VORICONAZOLE [Concomitant]
     Active Substance: VORICONAZOLE
     Indication: Graft versus host disease
     Dosage: UNK
     Route: 065
  143. VORICONAZOLE [Concomitant]
     Active Substance: VORICONAZOLE
     Indication: Immunosuppression
     Dosage: UNK
     Route: 065
  144. VORICONAZOLE [Concomitant]
     Active Substance: VORICONAZOLE
     Route: 065
  145. VORICONAZOLE [Concomitant]
     Active Substance: VORICONAZOLE
     Route: 065

REACTIONS (12)
  - Tooth hypoplasia [Not Recovered/Not Resolved]
  - Gastrointestinal disorder [Unknown]
  - Skin lesion [Unknown]
  - Enamel anomaly [Unknown]
  - Tooth disorder [Unknown]
  - Mucormycosis [Recovered/Resolved]
  - Acute graft versus host disease in intestine [Unknown]
  - Acute graft versus host disease in skin [Unknown]
  - Chronic graft versus host disease [Unknown]
  - Bronchopulmonary aspergillosis [Recovered/Resolved]
  - Product use in unapproved indication [Unknown]
  - Off label use [Unknown]
